FAERS Safety Report 4711083-3 (Version None)
Quarter: 2005Q3

REPORT INFORMATION
  Report Type: 
  Country: None (occurrence: None)
  Receive Date: 20050708
  Receipt Date: 20050627
  Transmission Date: 20060218
  Serious: Yes (Death, Hospitalization, Other)
  Sender: FDA-Public Use
  Company Number: 2005048946

PATIENT
  Age: 47 Year
  Sex: Female
  Weight: 96 kg

DRUGS (7)
  1. ATORVASTATIN CALCIUM [Suspect]
     Indication: TYPE IIA HYPERLIPIDAEMIA
     Dosage: 10 MG (10 MG, 1 IN 1 D), ORAL
     Route: 048
     Dates: end: 20050315
  2. ANASTROZOLE (ANASTROZOLE) [Suspect]
     Indication: BREAST CANCER
     Dosage: 1 MG (1 MG, 1 IN 1 D), ORAL
     Route: 048
     Dates: start: 20050101, end: 20050315
  3. ALL OTHER THERAPEUTIC PRODUCTS (ALL OTHER THERAPEUTIC PRODUCTS) [Concomitant]
  4. CLODRONATE DISODIUM (CLODRONATE DISODIUM) [Concomitant]
  5. PANTOPRAZOLE SODIUM [Concomitant]
  6. PRIMALAN (MEQUITAZINE) [Concomitant]
  7. ENDOTELON (HERBAL EXTRACTS NOS, VITIS VINIFERA) [Concomitant]

REACTIONS (28)
  - ABDOMINAL DISTENSION [None]
  - ABDOMINAL PAIN [None]
  - ANURIA [None]
  - ASCITES [None]
  - BLOOD PRESSURE DECREASED [None]
  - CARDIAC DISORDER [None]
  - CONDITION AGGRAVATED [None]
  - COUGH [None]
  - DEPRESSED LEVEL OF CONSCIOUSNESS [None]
  - GENERAL PHYSICAL HEALTH DETERIORATION [None]
  - HEPATIC ENCEPHALOPATHY [None]
  - HEPATIC FAILURE [None]
  - HEPATITIS FULMINANT [None]
  - HEPATOCELLULAR DAMAGE [None]
  - HYPERGLYCAEMIA [None]
  - HYPERKALAEMIA [None]
  - HYPOKALAEMIA [None]
  - HYPONATRAEMIA [None]
  - MALAISE [None]
  - METASTASES TO LIVER [None]
  - OXYGEN SATURATION DECREASED [None]
  - PLEURAL EFFUSION [None]
  - POLYURIA [None]
  - PROTEIN TOTAL DECREASED [None]
  - RENAL DISORDER [None]
  - RHABDOMYOLYSIS [None]
  - VOMITING [None]
  - WHITE BLOOD CELL COUNT INCREASED [None]
